FAERS Safety Report 23012618 (Version 2)
Quarter: 2023Q4

REPORT INFORMATION
  Report Type: Spontaneous
  Country: AU (occurrence: AU)
  Receive Date: 20230930
  Receipt Date: 20231019
  Transmission Date: 20240109
  Serious: Yes (Hospitalization)
  Sender: FDA-Public Use
  Company Number: AU-AMGEN-AUSSP2023171733

PATIENT
  Age: 36 Year
  Sex: Male
  Weight: 80 kg

DRUGS (28)
  1. PEGFILGRASTIM [Suspect]
     Active Substance: PEGFILGRASTIM
     Indication: Prophylaxis
     Dosage: UNK
     Route: 065
  2. DOXORUBICIN [Concomitant]
     Active Substance: DOXORUBICIN
     Indication: Product used for unknown indication
     Dosage: 40 MILLIGRAM/SQ. METER, BSA
     Dates: start: 20180626, end: 20180919
  3. BLEOMYCIN [Concomitant]
     Active Substance: BLEOMYCIN SULFATE
     Indication: Product used for unknown indication
  4. BRENTUXIMAB VEDOTIN [Concomitant]
     Active Substance: BRENTUXIMAB VEDOTIN
     Indication: Product used for unknown indication
     Dosage: 1.18 MILLIMOLE PER KILOGRAM, BSA
     Dates: start: 20180625, end: 20180918
  5. CYCLOPHOSPHAMIDE [Concomitant]
     Active Substance: CYCLOPHOSPHAMIDE
     Indication: Product used for unknown indication
     Dosage: 1250 MILLIGRAM/SQ. METER, BSA
     Dates: start: 20180626, end: 20180919
  6. DACARBAZINE [Concomitant]
     Active Substance: DACARBAZINE
     Indication: Product used for unknown indication
     Dosage: 250 MILLIGRAM/SQ. METER, BSA
     Dates: start: 20180627, end: 20180921
  7. DEXAMETHASONE [Concomitant]
     Active Substance: DEXAMETHASONE
     Indication: Product used for unknown indication
     Dosage: 40 MILLIGRAM/SQ. METER, BSA
     Dates: start: 20180626, end: 20180922
  8. ETOPOSIDE [Concomitant]
     Active Substance: ETOPOSIDE
     Indication: Product used for unknown indication
     Dosage: 150 MILLILITRE PER SQUARE METRE, BSA
     Dates: start: 20180626, end: 20180921
  9. PROCARBAZINE [Concomitant]
     Active Substance: PROCARBAZINE
     Indication: Product used for unknown indication
  10. PREDNISONE [Concomitant]
     Active Substance: PREDNISONE
     Indication: Product used for unknown indication
  11. VINCRISTINE [Concomitant]
     Active Substance: VINCRISTINE
     Indication: Product used for unknown indication
  12. DIETARY SUPPLEMENT\HERBALS\MILK THISTLE [Concomitant]
     Active Substance: MILK THISTLE
     Indication: Vitamin supplementation
     Dosage: 1 TAB
     Route: 048
     Dates: start: 20180618
  13. SELENIUM [Concomitant]
     Active Substance: SELENIUM
     Indication: Vitamin supplementation
     Dosage: 9 DROPS PER ORAL
     Dates: start: 20180617
  14. MANGANESE [Concomitant]
     Active Substance: MANGANESE CHLORIDE
     Indication: Vitamin supplementation
     Dosage: 1 TAB OD
     Route: 048
     Dates: start: 20180618
  15. ZINC [Concomitant]
     Active Substance: ZINC
     Indication: Vitamin supplementation
     Dosage: 1 ML
     Route: 048
     Dates: start: 20180611
  16. ACETYLCYSTEINE [Concomitant]
     Active Substance: ACETYLCYSTEINE
     Indication: Vitamin supplementation
     Dosage: 1/4 TSP PO
     Route: 048
     Dates: start: 20180619
  17. FAMCICLOVIR [Concomitant]
     Active Substance: FAMCICLOVIR
     Indication: Antiviral prophylaxis
     Dosage: 500 MILLIGRAM, BD
  18. BACTRIM DS [Concomitant]
     Active Substance: SULFAMETHOXAZOLE\TRIMETHOPRIM
     Indication: Prophylaxis
     Dosage: 1 TAB
     Route: 048
     Dates: start: 20180628
  19. FLUCONAZOLE [Concomitant]
     Active Substance: FLUCONAZOLE
     Indication: Antifungal prophylaxis
     Dosage: 400 MILLIGRAM
     Route: 048
     Dates: start: 20180628
  20. ALLOPURINOL [Concomitant]
     Active Substance: ALLOPURINOL
     Indication: Tumour lysis syndrome
     Dosage: 300 MILLIGRAM
     Route: 048
     Dates: start: 20180628, end: 20180628
  21. ALLOPURINOL [Concomitant]
     Active Substance: ALLOPURINOL
     Dosage: 300 MILLIGRAM
     Route: 048
     Dates: start: 20180824
  22. ONDANSETRON [Concomitant]
     Active Substance: ONDANSETRON
     Indication: Nausea
     Dosage: 4 MILLIGRAM, 1-2 TAB
     Route: 048
     Dates: start: 20180629
  23. TEMAZEPAM [Concomitant]
     Active Substance: TEMAZEPAM
     Indication: Insomnia
     Dosage: 10 MILLIGRAM
     Dates: start: 20180628
  24. METOCLOPRAMIDE [Concomitant]
     Active Substance: METOCLOPRAMIDE
     Indication: Nausea
     Dosage: 10 MILLIGRAM
     Route: 048
     Dates: start: 20180629
  25. OREGANO LEAF OIL [Concomitant]
     Active Substance: OREGANO LEAF OIL
     Indication: Prophylaxis
     Dosage: I TAB
     Route: 048
     Dates: start: 20180822
  26. ENOXIMONE [Concomitant]
     Active Substance: ENOXIMONE
     Indication: Prophylaxis
     Dosage: 60 MILLIGRAM BD
     Dates: start: 20180909
  27. PANTOPRAZOLE [Concomitant]
     Active Substance: PANTOPRAZOLE
     Indication: Gastrooesophageal reflux disease
     Dosage: 40 MILLIGRAM
     Dates: start: 20180929
  28. OXYCODONE [Concomitant]
     Active Substance: OXYCODONE
     Indication: Back pain
     Dosage: UNK
     Dates: start: 20180829

REACTIONS (2)
  - Chest pain [Recovered/Resolved]
  - Back pain [Recovered/Resolved]

NARRATIVE: CASE EVENT DATE: 20180929
